FAERS Safety Report 16440320 (Version 1)
Quarter: 2019Q3

REPORT INFORMATION
  Report Type: Spontaneous
  Country: US (occurrence: US)
  Receive Date: 20190617
  Receipt Date: 20190617
  Transmission Date: 20191004
  Serious: Yes (Other)
  Sender: FDA-Public Use
  Company Number: None

PATIENT
  Age: 77 Year
  Sex: Male
  Weight: 107 kg

DRUGS (3)
  1. NAFCILLIN [Concomitant]
     Active Substance: NAFCILLIN SODIUM
     Dates: start: 20181010, end: 20181114
  2. RIFAMPIN. [Concomitant]
     Active Substance: RIFAMPIN
     Dates: start: 20181005, end: 20181114
  3. RIVAROXABAN [Suspect]
     Active Substance: RIVAROXABAN
     Indication: DEEP VEIN THROMBOSIS
     Route: 048
     Dates: start: 20181018, end: 20181105

REACTIONS (3)
  - Drug level decreased [None]
  - Drug interaction [None]
  - Subclavian vein thrombosis [None]

NARRATIVE: CASE EVENT DATE: 20181105
